FAERS Safety Report 4531336-1 (Version None)
Quarter: 2004Q4

REPORT INFORMATION
  Report Type: 
  Country: None (occurrence: None)
  Receive Date: 20041206
  Receipt Date: 20040914
  Transmission Date: 20050328
  Serious: No
  Sender: FDA-Public Use
  Company Number: USA040978232

PATIENT
  Age: 35 Year
  Sex: Female

DRUGS (3)
  1. CYMBALTA [Suspect]
     Dosage: 60 MG DAY
  2. PROZAC [Suspect]
     Dosage: 20 MG DAY
  3. ORAL CONTRACEPTIVE NOS [Concomitant]

REACTIONS (2)
  - INSOMNIA [None]
  - MIDDLE INSOMNIA [None]
